FAERS Safety Report 12674440 (Version 1)
Quarter: 2016Q3

REPORT INFORMATION
  Report Type: Spontaneous
  Country: US (occurrence: US)
  Receive Date: 20160822
  Receipt Date: 20160822
  Transmission Date: 20161109
  Serious: No
  Sender: FDA-Public Use
  Company Number: US-BEH-2016058728

PATIENT
  Sex: Male
  Weight: 82.56 kg

DRUGS (17)
  1. DIPHENHYDRAMINE. [Concomitant]
     Active Substance: DIPHENHYDRAMINE
  2. DULERA [Concomitant]
     Active Substance: FORMOTEROL FUMARATE DIHYDRATE\MOMETASONE FUROATE
  3. DULERA [Concomitant]
     Active Substance: FORMOTEROL FUMARATE DIHYDRATE\MOMETASONE FUROATE
  4. MUCINEX ER [Concomitant]
  5. DELSYM [Concomitant]
     Active Substance: DEXTROMETHORPHAN
  6. PREDNISONE. [Concomitant]
     Active Substance: PREDNISONE
  7. ZEMAIRA [Suspect]
     Active Substance: .ALPHA.1-PROTEINASE INHIBITOR HUMAN
     Indication: ALPHA-1 ANTI-TRYPSIN DEFICIENCY
     Route: 042
     Dates: start: 20090722
  8. SPIRIVA [Concomitant]
     Active Substance: TIOTROPIUM BROMIDE MONOHYDRATE
  9. SODIUM CHLORIDE 0.9% [Concomitant]
     Active Substance: SODIUM CHLORIDE
  10. EPIPEN [Concomitant]
     Active Substance: EPINEPHRINE
  11. FISH OIL [Concomitant]
     Active Substance: FISH OIL
  12. OXYGEN. [Concomitant]
     Active Substance: OXYGEN
  13. LEXAPRO [Concomitant]
     Active Substance: ESCITALOPRAM OXALATE
  14. AUGMENTIN [Concomitant]
     Active Substance: AMOXICILLIN\CLAVULANATE POTASSIUM
  15. LEVOTHYROXINE SODIUM. [Concomitant]
     Active Substance: LEVOTHYROXINE SODIUM
  16. PROAIR HFA [Concomitant]
     Active Substance: ALBUTEROL SULFATE
  17. LIPO-FLAVONOID PLUS [Concomitant]

REACTIONS (1)
  - Dyspnoea [Unknown]
